FAERS Safety Report 4565555-5 (Version None)
Quarter: 2005Q1

REPORT INFORMATION
  Report Type: 
  Country: None (occurrence: None)
  Receive Date: 20050126
  Receipt Date: 20050105
  Transmission Date: 20050727
  Serious: Yes (Other)
  Sender: FDA-Public Use
  Company Number: US_0501110063

PATIENT
  Age: 14 Year
  Sex: Male

DRUGS (1)
  1. STRATTERA [Suspect]
     Dosage: 80MG/1 DAY
     Dates: start: 20040801, end: 20041201

REACTIONS (1)
  - SYNCOPE [None]
